FAERS Safety Report 9807316 (Version 1)
Quarter: 2014Q1

REPORT INFORMATION
  Report Type: Spontaneous
  Country: US (occurrence: US)
  Receive Date: 20140110
  Receipt Date: 20140110
  Transmission Date: 20141002
  Serious: No
  Sender: FDA-Public Use
  Company Number: US-009507513-1401USA003636

PATIENT
  Sex: Female

DRUGS (1)
  1. AZASITE [Suspect]
     Indication: HORDEOLUM
     Dosage: 2 WEEKS ON, 2 WEEKS OFF
     Route: 047
     Dates: start: 201207

REACTIONS (3)
  - Off label use [Unknown]
  - Inappropriate schedule of drug administration [Unknown]
  - No adverse event [Unknown]
